FAERS Safety Report 16062630 (Version 2)
Quarter: 2019Q1

REPORT INFORMATION
  Report Type: Spontaneous
  Country: US (occurrence: US)
  Receive Date: 20190312
  Receipt Date: 20190320
  Transmission Date: 20190418
  Serious: Yes (Other)
  Sender: FDA-Public Use
  Company Number: US-HORIZON-PEN-0261-2019

PATIENT
  Age: 85 Year
  Sex: Female

DRUGS (14)
  1. LEVOTHYROXINE. [Concomitant]
     Active Substance: LEVOTHYROXINE
  2. EVISTA [Concomitant]
     Active Substance: RALOXIFENE HYDROCHLORIDE
  3. METOPROLOL. [Concomitant]
     Active Substance: METOPROLOL
  4. BUPROPION. [Concomitant]
     Active Substance: BUPROPION
  5. SINEMET [Concomitant]
     Active Substance: CARBIDOPA\LEVODOPA
  6. VITAMIN B12 [Concomitant]
     Active Substance: CYANOCOBALAMIN
  7. DICLOFENAC SODIUM. [Concomitant]
     Active Substance: DICLOFENAC SODIUM
  8. TYLENOL [Concomitant]
     Active Substance: ACETAMINOPHEN
  9. CEPHALEXIN. [Concomitant]
     Active Substance: CEPHALEXIN
  10. NAMENDA [Concomitant]
     Active Substance: MEMANTINE HYDROCHLORIDE
  11. LEXAPRO [Concomitant]
     Active Substance: ESCITALOPRAM OXALATE
  12. PENNSAID [Suspect]
     Active Substance: DICLOFENAC SODIUM
     Indication: RIB FRACTURE
     Dosage: SMALL AMOUNT AS NEEDED
  13. FOLIC ACID. [Concomitant]
     Active Substance: FOLIC ACID
  14. ARICEPT [Concomitant]
     Active Substance: DONEPEZIL HYDROCHLORIDE

REACTIONS (8)
  - Rib fracture [Recovering/Resolving]
  - Somnolence [Recovered/Resolved]
  - Prescription drug used without a prescription [Not Recovered/Not Resolved]
  - Insurance issue [Not Recovered/Not Resolved]
  - Off label use [Not Recovered/Not Resolved]
  - Inability to afford medication [Not Recovered/Not Resolved]
  - Fall [Recovering/Resolving]
  - Constipation [Recovered/Resolved]

NARRATIVE: CASE EVENT DATE: 20181231
